FAERS Safety Report 21262114 (Version 2)
Quarter: 2022Q4

REPORT INFORMATION
  Report Type: Report from Study
  Country: US (occurrence: US)
  Receive Date: 20220827
  Receipt Date: 20221101
  Transmission Date: 20230113
  Serious: Yes (Hospitalization)
  Sender: FDA-Public Use
  Company Number: US-ABBVIE-22K-163-4516670-00

PATIENT
  Age: 69 Year
  Sex: Female
  Weight: 47 kg

DRUGS (2)
  1. RINVOQ [Suspect]
     Active Substance: UPADACITINIB
     Indication: Rheumatoid arthritis
     Dosage: FORM STRENGTH:15 MILLIGRAM
     Route: 048
     Dates: start: 20210216
  2. VIMPAT [Concomitant]
     Active Substance: LACOSAMIDE
     Indication: Loss of consciousness

REACTIONS (10)
  - Fall [Recovering/Resolving]
  - Pain [Unknown]
  - Loss of consciousness [Recovering/Resolving]
  - Spinal fracture [Recovering/Resolving]
  - Rosacea [Recovered/Resolved]
  - Blood sodium decreased [Unknown]
  - Peripheral swelling [Unknown]
  - Rosacea [Not Recovered/Not Resolved]
  - Pain in extremity [Unknown]
  - Back pain [Unknown]

NARRATIVE: CASE EVENT DATE: 20220801
